FAERS Safety Report 8613338 (Version 5)
Quarter: 2013Q2

REPORT INFORMATION
  Report Type: Report from Study
  Country: US (occurrence: US)
  Receive Date: 20120613
  Receipt Date: 20130403
  Transmission Date: 20140414
  Serious: Yes (Congenital Anomaly, Other)
  Sender: FDA-Public Use
  Company Number: US-ABBOTT-12P-163-0942467-00

PATIENT
  Sex: Female

DRUGS (4)
  1. NORVIR [Suspect]
     Indication: MATERNAL EXPOSURE TIMING UNSPECIFIED
     Route: 064
  2. TRUVADA [Suspect]
     Indication: MATERNAL EXPOSURE TIMING UNSPECIFIED
     Route: 064
  3. REYATAZ [Suspect]
     Indication: MATERNAL EXPOSURE TIMING UNSPECIFIED
     Route: 064
  4. RETROVIR [Suspect]
     Indication: MATERNAL EXPOSURE TIMING UNSPECIFIED
     Route: 064

REACTIONS (8)
  - Single umbilical artery [Unknown]
  - Foetal exposure during pregnancy [Unknown]
  - Laboratory test abnormal [Unknown]
  - Syndactyly [Unknown]
  - Phalangeal hypoplasia [Unknown]
  - Patent ductus arteriosus [Unknown]
  - Pulmonary hypertension [Unknown]
  - Ventricular septal defect [Unknown]
